FAERS Safety Report 5001100-8 (Version None)
Quarter: 2006Q2

REPORT INFORMATION
  Report Type: 
  Country: None (occurrence: None)
  Receive Date: 20060512
  Receipt Date: 20060223
  Transmission Date: 20061013
  Serious: Yes (Other)
  Sender: FDA-Public Use
  Company Number: FRWYE425023FEB06

PATIENT
  Sex: Female

DRUGS (4)
  1. ENBREL [Suspect]
     Indication: PSORIASIS
     Route: 058
     Dates: start: 20060127, end: 20060214
  2. ATARAX [Concomitant]
     Dosage: UNKNONW
     Route: 065
     Dates: start: 20050901
  3. FLUISEDAL [Concomitant]
     Dosage: UNKNOWN
     Dates: start: 20030101
  4. ACETAMINOPHEN [Concomitant]
     Route: 065
     Dates: start: 20040101

REACTIONS (6)
  - CONDITION AGGRAVATED [None]
  - DRUG INEFFECTIVE [None]
  - LEUKOCYTOCLASTIC VASCULITIS [None]
  - NEUTROPHIL COUNT INCREASED [None]
  - PSORIASIS [None]
  - WHITE BLOOD CELL COUNT INCREASED [None]
